FAERS Safety Report 14895220 (Version 1)
Quarter: 2018Q2

REPORT INFORMATION
  Report Type: Spontaneous
  Country: US (occurrence: US)
  Receive Date: 20180515
  Receipt Date: 20180515
  Transmission Date: 20180711
  Serious: No
  Sender: FDA-Public Use
  Company Number: US-PFIZER INC-2018197220

PATIENT
  Age: 51 Year
  Sex: Female
  Weight: 50.34 kg

DRUGS (1)
  1. XELJANZ XR [Suspect]
     Active Substance: TOFACITINIB CITRATE
     Indication: RHEUMATOID ARTHRITIS
     Dosage: 11 MG (1 TABLET), DAILY (TOOK FOR 3 MONTHS)
     Route: 048
     Dates: start: 201801, end: 201804

REACTIONS (1)
  - Drug ineffective [Unknown]
